FAERS Safety Report 9734353 (Version 1)
Quarter: 2013Q4

REPORT INFORMATION
  Report Type: Spontaneous
  Country: US (occurrence: US)
  Receive Date: 20131206
  Receipt Date: 20131206
  Transmission Date: 20140711
  Serious: Yes (Hospitalization, Other)
  Sender: FDA-Public Use
  Company Number: US-SUN PHARMACEUTICAL INDUSTRIES LTD-2013SUN05112

PATIENT
  Age: 45 Year
  Sex: Female

DRUGS (2)
  1. QUININE SULFATE CAPSULES, USP 324 MG [Suspect]
     Indication: PRODUCT USED FOR UNKNOWN INDICATION
     Route: 048
  2. CITALOPRAM HBR TABS 10MG [Suspect]
     Indication: PRODUCT USED FOR UNKNOWN INDICATION
     Route: 048

REACTIONS (7)
  - Retinal toxicity [Recovering/Resolving]
  - Convulsion [Unknown]
  - Cardiogenic shock [None]
  - Electrocardiogram QT prolonged [Unknown]
  - Electrocardiogram QRS complex prolonged [Unknown]
  - Hypotension [Not Recovered/Not Resolved]
  - Intentional overdose [Unknown]
